FAERS Safety Report 23565234 (Version 3)
Quarter: 2024Q3

REPORT INFORMATION
  Report Type: Spontaneous
  Country: US (occurrence: US)
  Receive Date: 20240226
  Receipt Date: 20240708
  Transmission Date: 20241016
  Serious: No
  Sender: PFIZER
  Company Number: US-PFIZER INC-202400049525

PATIENT
  Age: 69 Year
  Sex: Female

DRUGS (4)
  1. XELJANZ XR [Suspect]
     Active Substance: TOFACITINIB CITRATE
     Dosage: 11 MG, 1X/DAY
     Route: 048
     Dates: end: 202311
  2. XELJANZ XR [Suspect]
     Active Substance: TOFACITINIB CITRATE
     Dosage: 11 MG, 1X/DAY
     Route: 048
     Dates: start: 202402
  3. TERBINAFINE HYDROCHLORIDE [Concomitant]
     Active Substance: TERBINAFINE HYDROCHLORIDE
     Dosage: UNK
     Route: 048
  4. MELOXICAM [Concomitant]
     Active Substance: MELOXICAM
     Dosage: UNK
     Route: 048

REACTIONS (10)
  - Onychomycosis [Unknown]
  - Arthritis [Recovered/Resolved]
  - Pain [Recovered/Resolved]
  - Pain in extremity [Not Recovered/Not Resolved]
  - Arthritis [Not Recovered/Not Resolved]
  - Arthralgia [Not Recovered/Not Resolved]
  - Pain in extremity [Not Recovered/Not Resolved]
  - Mobility decreased [Not Recovered/Not Resolved]
  - Alopecia [Not Recovered/Not Resolved]
  - Psoriasis [Not Recovered/Not Resolved]

NARRATIVE: CASE EVENT DATE: 20240101
